FAERS Safety Report 20080484 (Version 1)
Quarter: 2021Q4

REPORT INFORMATION
  Report Type: Report from Study
  Country: TR (occurrence: TR)
  Receive Date: 20211117
  Receipt Date: 20211117
  Transmission Date: 20220303
  Serious: Yes (Death, Hospitalization)
  Sender: FDA-Public Use
  Company Number: TR-BIOGEN-2021BI01068589

PATIENT
  Sex: Male

DRUGS (1)
  1. SPINRAZA [Suspect]
     Active Substance: NUSINERSEN
     Indication: Product used for unknown indication
     Dosage: ENGLISH: SPINRAZA 2.4 MG/ML VIAL CONTAINING SOLUTION FOR INTRATHECAL INJECTION (NUSINERSEN)
     Route: 037

REACTIONS (3)
  - Death [Fatal]
  - Gastrooesophageal reflux disease [Unknown]
  - Pneumonia [Unknown]
